FAERS Safety Report 11438790 (Version 1)
Quarter: 2015Q3

REPORT INFORMATION
  Report Type: Spontaneous
  Country: US (occurrence: US)
  Receive Date: 20150901
  Receipt Date: 20150901
  Transmission Date: 20151125
  Serious: No
  Sender: FDA-Public Use
  Company Number: US-ROCHE-1143121

PATIENT
  Sex: Male

DRUGS (3)
  1. PEGASYS [Suspect]
     Active Substance: PEGINTERFERON ALFA-2A
     Indication: PRODUCT USED FOR UNKNOWN INDICATION
     Route: 065
  2. RIBAVIRIN. [Suspect]
     Active Substance: RIBAVIRIN
     Indication: PRODUCT USED FOR UNKNOWN INDICATION
     Route: 065
  3. TELAPREVIR [Suspect]
     Active Substance: TELAPREVIR
     Indication: PRODUCT USED FOR UNKNOWN INDICATION

REACTIONS (10)
  - Haematocrit decreased [Unknown]
  - Rash [Unknown]
  - Insomnia [Unknown]
  - Abdominal discomfort [Unknown]
  - Thrombocytopenia [Unknown]
  - Pyrexia [Unknown]
  - Body temperature increased [Unknown]
  - White blood cell count decreased [Unknown]
  - Alopecia [Unknown]
  - Haemoglobin decreased [Unknown]
